FAERS Safety Report 24224351 (Version 1)
Quarter: 2024Q3

REPORT INFORMATION
  Report Type: Spontaneous
  Country: US (occurrence: US)
  Receive Date: 20240819
  Receipt Date: 20240819
  Transmission Date: 20241017
  Serious: Yes (Other)
  Sender: PROGENICS PHARMACEUTICALS
  Company Number: US-PROGENICS PHARMACEUTICALS, INC.-LMI-2024-01013

PATIENT
  Age: 75 Year
  Sex: Male
  Weight: 118 kg

DRUGS (1)
  1. PYLARIFY [Suspect]
     Active Substance: PIFLUFOLASTAT F-18
     Indication: Positron emission tomogram
     Dosage: 8.78 MILLICURIE
     Route: 042
     Dates: start: 20240809, end: 20240809

REACTIONS (2)
  - Dyspnoea [Recovered/Resolved]
  - Contrast media reaction [Recovered/Resolved]

NARRATIVE: CASE EVENT DATE: 20240809
